FAERS Safety Report 5273736-0 (Version None)
Quarter: 2007Q1

REPORT INFORMATION
  Report Type: 
  Country: None (occurrence: None)
  Receive Date: 20070323
  Receipt Date: 20070312
  Transmission Date: 20070707
  Serious: Yes (Hospitalization)
  Sender: FDA-Public Use
  Company Number: GB-BAYER-200710316BNE

PATIENT
  Age: 84 Year
  Sex: Male

DRUGS (8)
  1. ASPIRIN [Suspect]
     Indication: MYOCARDIAL INFARCTION
     Route: 048
     Dates: start: 19950101, end: 20070213
  2. AMLODIPINE [Concomitant]
     Indication: HYPERTENSION
     Route: 048
  3. BENDROFLUAZIDE [Concomitant]
  4. GTN-S [Concomitant]
  5. ISOSORBIDE MONONITRATE [Concomitant]
     Indication: ANGINA PECTORIS
     Route: 048
     Dates: end: 20070213
  6. LACTULOSE [Concomitant]
  7. SIMVASTATIN [Concomitant]
     Indication: BLOOD CHOLESTEROL INCREASED
     Route: 048
  8. SLOW-K [Concomitant]
     Indication: BLOOD POTASSIUM DECREASED
     Route: 048
     Dates: end: 20070213

REACTIONS (3)
  - HAEMATEMESIS [None]
  - HAEMOGLOBIN DECREASED [None]
  - HYPOTENSION [None]
